FAERS Safety Report 10222363 (Version 5)
Quarter: 2017Q1

REPORT INFORMATION
  Report Type: Spontaneous
  Country: KR (occurrence: KR)
  Receive Date: 20140606
  Receipt Date: 20170127
  Transmission Date: 20170428
  Serious: Yes (Other)
  Sender: FDA-Public Use
  Company Number: KR-JNJFOC-20131201297

PATIENT

DRUGS (6)
  1. REMICADE [Suspect]
     Active Substance: INFLIXIMAB
     Indication: RHEUMATOID ARTHRITIS
     Dosage: DOSE LOADING PHASE: WEEK 0, 2 AND 6 MAINTENANCE PHASE: WEEK 14, 22, 30, 38, 46 AND 54
     Route: 042
  2. CHLORPHENIRAMINE. [Concomitant]
     Active Substance: CHLORPHENIRAMINE
     Indication: PREMEDICATION
     Route: 065
  3. FOLIC ACID. [Concomitant]
     Active Substance: FOLIC ACID
     Dosage: MORE THAN OR EQUAL TO 5MG/WEEK
     Route: 048
  4. REMICADE [Suspect]
     Active Substance: INFLIXIMAB
     Indication: RHEUMATOID ARTHRITIS
     Dosage: WEEKS 0, 2 AND 6 AND THEN ONCE EVERY 8 WEEKS UP TO WEEK 30
     Route: 042
  5. MTX [Suspect]
     Active Substance: METHOTREXATE SODIUM
     Indication: RHEUMATOID ARTHRITIS
     Dosage: 12.5-25 MG/WEEK
     Route: 048
  6. MTX [Suspect]
     Active Substance: METHOTREXATE SODIUM
     Indication: RHEUMATOID ARTHRITIS
     Dosage: 12.5-25 MG/WEEK
     Route: 051

REACTIONS (28)
  - Infusion related reaction [Unknown]
  - Gastroenteritis [Unknown]
  - Gamma-glutamyltransferase increased [Unknown]
  - Uterine haemorrhage [Unknown]
  - Upper respiratory tract infection [Unknown]
  - Herpes zoster [Unknown]
  - Alanine aminotransferase increased [Unknown]
  - Rash [Unknown]
  - Nausea [Unknown]
  - Adverse event [Unknown]
  - Neutropenia [Unknown]
  - Leukopenia [Unknown]
  - Rheumatoid arthritis [Unknown]
  - Anaemia [Unknown]
  - Drug specific antibody present [Unknown]
  - Lower respiratory tract infection [Unknown]
  - Latent tuberculosis [Unknown]
  - Urinary tract infection [Unknown]
  - Bronchitis [Unknown]
  - Infection [Unknown]
  - Hypertension [Unknown]
  - Cardiac disorder [Unknown]
  - Nasopharyngitis [Unknown]
  - Rhinitis [Unknown]
  - Headache [Unknown]
  - Pyrexia [Unknown]
  - Neoplasm malignant [Unknown]
  - Aspartate aminotransferase increased [Unknown]
